FAERS Safety Report 17648402 (Version 3)
Quarter: 2020Q2

REPORT INFORMATION
  Report Type: Spontaneous
  Country: US (occurrence: US)
  Receive Date: 20200409
  Receipt Date: 20200506
  Transmission Date: 20200713
  Serious: No
  Sender: FDA-Public Use
  Company Number: US-HORIZON-KRY-0477-2020

PATIENT
  Age: 67 Year

DRUGS (1)
  1. KRYSTEXXA [Suspect]
     Active Substance: PEGLOTICASE
     Indication: GOUT
     Dosage: 8MG Q2 WEEKS
     Route: 042
     Dates: start: 20200325

REACTIONS (4)
  - Myalgia [Unknown]
  - Chills [Unknown]
  - Rash [Recovered/Resolved]
  - Inappropriate schedule of product administration [Unknown]

NARRATIVE: CASE EVENT DATE: 202004
